FAERS Safety Report 10706554 (Version 1)
Quarter: 2015Q1

REPORT INFORMATION
  Report Type: Spontaneous
  Country: US (occurrence: US)
  Receive Date: 20150113
  Receipt Date: 20150113
  Transmission Date: 20150721
  Serious: Yes (Other)
  Sender: FDA-Public Use
  Company Number: US-JNJFOC-20141220868

PATIENT

DRUGS (2)
  1. RISPERIDONE. [Suspect]
     Active Substance: RISPERIDONE
     Indication: SCHIZOAFFECTIVE DISORDER
     Route: 048
  2. RISPERIDONE. [Suspect]
     Active Substance: RISPERIDONE
     Indication: SCHIZOPHRENIA
     Route: 048

REACTIONS (7)
  - Schizoaffective disorder [Unknown]
  - Weight increased [Unknown]
  - Cataract cortical [Unknown]
  - Cataract nuclear [Unknown]
  - Schizophrenia [Unknown]
  - Extrapyramidal disorder [Unknown]
  - Cataract subcapsular [Unknown]
